FAERS Safety Report 14045248 (Version 7)
Quarter: 2017Q4

REPORT INFORMATION
  Report Type: Report from Study
  Country: FR (occurrence: FR)
  Receive Date: 20171005
  Receipt Date: 20171110
  Transmission Date: 20180321
  Serious: Yes (Other)
  Sender: FDA-Public Use
  Company Number: FR-ROCHE-1736627

PATIENT
  Age: 56 Year
  Sex: Male
  Weight: 69 kg

DRUGS (8)
  1. LEUCOVORIN. [Suspect]
     Active Substance: LEUCOVORIN
     Indication: COLORECTAL CANCER METASTATIC
     Dosage: MOST RECENT DOSE PRIOR TO AE: 03/MAR/2016 AT 13: 05 ?MOST RECENT DOSE PRIOR TO INTERSTITIAL LUNG DIS
     Route: 042
     Dates: start: 20160121
  2. ATEZOLIZUMAB. [Suspect]
     Active Substance: ATEZOLIZUMAB
     Indication: COLORECTAL CANCER METASTATIC
     Dosage: MOST RECENT DOSE PRIOR TO AUTOIMMUNE PSORIATIC ARTHRITIS: 03/MAR/2016 AT 11:15 800 MG?MOST RECENT DO
     Route: 042
     Dates: start: 20160121
  3. SODIUM BICARBONATE. [Concomitant]
     Active Substance: SODIUM BICARBONATE
     Indication: MUCOSAL INFLAMMATION
     Route: 065
     Dates: start: 20151001
  4. FLAGYL [Concomitant]
     Active Substance: METRONIDAZOLE\METRONIDAZOLE HYDROCHLORIDE
     Indication: COLITIS
     Route: 065
     Dates: start: 20170110, end: 20170118
  5. 5-FLUOROURACIL [Suspect]
     Active Substance: FLUOROURACIL
     Indication: COLORECTAL CANCER METASTATIC
     Dosage: MOST RECENT DOSE PRIOR TO AE: 03/MAR/2016 AT 13:05 4600 MG?MOST RECENT DOSE PRIOR TO INTERSTITIAL LU
     Route: 042
     Dates: start: 20160121
  6. ROCEPHINE [Concomitant]
     Active Substance: CEFTRIAXONE SODIUM
     Indication: COLITIS
     Route: 065
     Dates: start: 20170110, end: 20170118
  7. ESOMEPRAZOLE [Concomitant]
     Active Substance: ESOMEPRAZOLE
     Indication: PROPHYLAXIS
     Route: 065
     Dates: start: 20160420
  8. BEVACIZUMAB. [Suspect]
     Active Substance: BEVACIZUMAB
     Indication: COLORECTAL CANCER METASTATIC
     Dosage: MOST RECENT DOSE PRIOR TO AUTOIMMUNE PSORIATIC ARTHRITIS: 03/MAR/2016 AT 12:25 375 MG?MOST RECENT DO
     Route: 042
     Dates: start: 20150924

REACTIONS (2)
  - Interstitial lung disease [Recovered/Resolved]
  - Psoriatic arthropathy [Recovered/Resolved]

NARRATIVE: CASE EVENT DATE: 20160317
